FAERS Safety Report 8286708-9 (Version None)
Quarter: 2012Q2

REPORT INFORMATION
  Report Type: 
  Country: None (occurrence: None)
  Receive Date: 20120416
  Receipt Date: 20120402
  Transmission Date: 20120825
  Serious: No
  Sender: FDA-Public Use
  Company Number: ES-NOVOPROD-338103

PATIENT
  Age: 53 Year
  Sex: Male
  Weight: 96.4 kg

DRUGS (2)
  1. LIRAGLUTIDE FLEXPEN [Suspect]
     Indication: OBESITY
     Dosage: 0.6 MG, QD
     Dates: start: 20110801
  2. LIRAGLUTIDE FLEXPEN [Suspect]
     Dosage: 3.0 MG, QD
     Route: 058
     Dates: start: 20110801

REACTIONS (3)
  - RASH [None]
  - INJECTION SITE PRURITUS [None]
  - INJECTION SITE SWELLING [None]
